FAERS Safety Report 6032541-8 (Version None)
Quarter: 2009Q1

REPORT INFORMATION
  Report Type: 
  Country: None (occurrence: None)
  Receive Date: 20090109
  Receipt Date: 20081210
  Transmission Date: 20090719
  Serious: No
  Sender: FDA-Public Use
  Company Number: A0759722A

PATIENT
  Age: 54 Year
  Sex: Female

DRUGS (2)
  1. TYKERB [Suspect]
     Dosage: 5TAB PER DAY
     Route: 048
     Dates: start: 20081112
  2. HYDROCHLOROTHIAZIDE [Concomitant]

REACTIONS (5)
  - DIARRHOEA [None]
  - EPISTAXIS [None]
  - NASAL DRYNESS [None]
  - SKIN CHAPPED [None]
  - SKIN HAEMORRHAGE [None]
